FAERS Safety Report 12262498 (Version 1)
Quarter: 2016Q2

REPORT INFORMATION
  Report Type: Spontaneous
  Country: TN (occurrence: TN)
  Receive Date: 20160413
  Receipt Date: 20160413
  Transmission Date: 20160815
  Serious: Yes (Death)
  Sender: FDA-Public Use
  Company Number: TN-ACCORD-039539

PATIENT
  Age: 45 Year
  Sex: Female

DRUGS (1)
  1. ETOPOSIDE. [Suspect]
     Active Substance: ETOPOSIDE
     Indication: HISTIOCYTOSIS HAEMATOPHAGIC

REACTIONS (2)
  - Septic shock [Fatal]
  - Bone marrow failure [Fatal]
